FAERS Safety Report 10637640 (Version 1)
Quarter: 2014Q4

REPORT INFORMATION
  Report Type: Spontaneous
  Country: US (occurrence: None)
  Receive Date: 20141121
  Receipt Date: 20141121
  Transmission Date: 20150529
  Serious: No
  Sender: FDA-Public Use
  Company Number: 163-10004-14072421

PATIENT
  Age: 67 Year
  Sex: Female

DRUGS (9)
  1. OTEZLA [Suspect]
     Active Substance: APREMILAST
     Indication: PSORIATIC ARTHROPATHY
     Dosage: 2 IN 1 D
     Route: 048
     Dates: start: 20140702
  2. IRON (IRON) [Concomitant]
     Active Substance: IRON
  3. ATORVASTATIN CALCIUM (ATORVASTATIN CALCIUM) [Concomitant]
     Active Substance: ATORVASTATIN CALCIUM
  4. ASPIR-18 (ACETYLSALICYLIC ACID) [Concomitant]
  5. DAYPRO (OXAPROZIN) [Concomitant]
  6. SYNTHROID [Concomitant]
     Active Substance: LEVOTHYROXINE SODIUM
  7. RANITIDINE HCL (RANITIDINE HYDROCHLORIDE) [Concomitant]
  8. HYDROCHLOROTHIAZIDE AND LISINOPRIL [Concomitant]
     Active Substance: HYDROCHLOROTHIAZIDE\LISINOPRIL
  9. HYDROCODONE/ACETAMINOPHEN (REMEDEINE /01204101/) [Concomitant]

REACTIONS (2)
  - Nausea [None]
  - Abdominal discomfort [None]
